FAERS Safety Report 16627984 (Version 2)
Quarter: 2019Q3

REPORT INFORMATION
  Report Type: Report from Study
  Country: NL (occurrence: NL)
  Receive Date: 20190724
  Receipt Date: 20190808
  Transmission Date: 20191004
  Serious: Yes (Hospitalization)
  Sender: FDA-Public Use
  Company Number: NL-GILEAD-2019-0405580

PATIENT
  Age: 57 Year
  Sex: Male
  Weight: 72.2 kg

DRUGS (16)
  1. BUDESONIDE. [Concomitant]
     Active Substance: BUDESONIDE
     Indication: RHINITIS ALLERGIC
  2. AXICABTAGENE CILOLEUCEL [Suspect]
     Active Substance: AXICABTAGENE CILOLEUCEL
     Indication: NON-HODGKIN^S LYMPHOMA
     Dosage: 68 ML, ONCE
     Route: 042
     Dates: start: 20190412, end: 20190412
  3. PANTOPRAZOLE [Concomitant]
     Active Substance: PANTOPRAZOLE
  4. METAMUCIL CITRON [Concomitant]
  5. COTRIMOXAZOL [Concomitant]
     Active Substance: SULFAMETHOXAZOLE\TRIMETHOPRIM
  6. NATRIUMCHLORIDE [Concomitant]
     Active Substance: SODIUM CHLORIDE
  7. NOVORAPID [Concomitant]
     Active Substance: INSULIN ASPART
  8. MIDAZOLAM [Suspect]
     Active Substance: MIDAZOLAM HYDROCHLORIDE
     Indication: SEDATION
     Dosage: 5 MG/ML
     Route: 042
     Dates: start: 201905
  9. PARACETAMOL [Concomitant]
     Active Substance: ACETAMINOPHEN
  10. VALACICLOVIR [Concomitant]
     Active Substance: VALACYCLOVIR HYDROCHLORIDE
  11. FLUDARABINE [Suspect]
     Active Substance: FLUDARABINE PHOSPHATE
     Indication: BONE MARROW CONDITIONING REGIMEN
     Dosage: 60 MG, QD
     Route: 042
     Dates: start: 20190407, end: 20190409
  12. FLUCONAZOL [Concomitant]
     Active Substance: FLUCONAZOLE
  13. METOCLOPRAMIDE. [Concomitant]
     Active Substance: METOCLOPRAMIDE
  14. LANETTE WAX [Concomitant]
  15. CYCLOPHOSPHAMIDE. [Suspect]
     Active Substance: CYCLOPHOSPHAMIDE
     Indication: BONE MARROW CONDITIONING REGIMEN
     Dosage: 1000 MG, QD
     Route: 042
     Dates: start: 20190407, end: 20190409
  16. FRAXIPARINE [Concomitant]
     Active Substance: NADROPARIN CALCIUM
     Indication: THROMBOSIS PROPHYLAXIS

REACTIONS (4)
  - Rhinovirus infection [Recovered/Resolved]
  - Confusional state [Recovered/Resolved]
  - Anxiety [Recovered/Resolved]
  - Pneumonia [Recovered/Resolved]

NARRATIVE: CASE EVENT DATE: 20190430
